FAERS Safety Report 24105067 (Version 2)
Quarter: 2024Q4

REPORT INFORMATION
  Report Type: Report from Study
  Country: CA (occurrence: CA)
  Receive Date: 20240717
  Receipt Date: 20241114
  Transmission Date: 20250115
  Serious: Yes (Hospitalization, Other)
  Sender: NOVARTIS
  Company Number: CA-002147023-NVSC2024CA144361

PATIENT
  Age: 68 Year
  Sex: Female

DRUGS (2)
  1. KISQALI [Suspect]
     Active Substance: RIBOCICLIB
     Indication: Breast cancer metastatic
     Dosage: 600 MG, QD
     Route: 048
     Dates: start: 20240409
  2. KISQALI [Suspect]
     Active Substance: RIBOCICLIB
     Dosage: 400 MG, QD
     Route: 065
     Dates: start: 20240505

REACTIONS (5)
  - Neutrophil count decreased [Unknown]
  - Pneumonia [Unknown]
  - Respiratory syncytial virus infection [Unknown]
  - Pyrexia [Unknown]
  - Toothache [Unknown]

NARRATIVE: CASE EVENT DATE: 20240503
